FAERS Safety Report 5311097-9 (Version None)
Quarter: 2007Q2

REPORT INFORMATION
  Report Type: 
  Country: None (occurrence: None)
  Receive Date: 20070430
  Receipt Date: 20070417
  Transmission Date: 20071010
  Serious: Yes (Other)
  Sender: FDA-Public Use
  Company Number: US-NOVOPROD-262840

PATIENT
  Age: 30 Year
  Sex: Male
  Weight: 102.95 kg

DRUGS (2)
  1. NOVOLOG MIX 70/30 [Suspect]
     Indication: DIABETES MELLITUS INSULIN-DEPENDENT
     Dosage: 90 IU, QD - 60 IU IN A.M. + 30 IU IN P.M.
     Dates: start: 20060101
  2. HUMALOG                            /00030501/ [Concomitant]
     Indication: DIABETES MELLITUS INSULIN-DEPENDENT
     Dosage: 4-5 IU, QD
     Route: 058

REACTIONS (2)
  - DYSPNOEA [None]
  - RASH PAPULAR [None]
